FAERS Safety Report 20626113 (Version 1)
Quarter: 2022Q1

REPORT INFORMATION
  Report Type: Spontaneous
  Country: US (occurrence: US)
  Receive Date: 20220323
  Receipt Date: 20220323
  Transmission Date: 20220423
  Serious: Yes (Death, Other)
  Sender: FDA-Public Use
  Company Number: US-LEADINGPHARMA-US-2022LEASPO00047

PATIENT
  Sex: Male

DRUGS (7)
  1. LORAZEPAM [Suspect]
     Active Substance: LORAZEPAM
     Dosage: ONE TABLET
     Route: 048
     Dates: start: 20220209
  2. LORAZEPAM [Suspect]
     Active Substance: LORAZEPAM
     Dosage: TWO LORAZEPAM
     Route: 048
     Dates: start: 20220211
  3. MORPHINE [Suspect]
     Active Substance: MORPHINE
     Indication: Insomnia
     Dosage: 0.25
     Route: 065
     Dates: start: 20220209
  4. MORPHINE [Suspect]
     Active Substance: MORPHINE
     Dosage: 0.5
     Route: 065
  5. QUETIAPINE [Concomitant]
     Active Substance: QUETIAPINE
     Indication: Product used for unknown indication
     Route: 065
  6. MIDODRINE [Concomitant]
     Active Substance: MIDODRINE
     Indication: Blood pressure measurement
     Route: 065
  7. CIPROFLOXACIN [Concomitant]
     Active Substance: CIPROFLOXACIN
     Indication: Product used for unknown indication
     Route: 065

REACTIONS (5)
  - Choking [Unknown]
  - Product use complaint [Unknown]
  - Death [Fatal]
  - Dyspnoea [Unknown]
  - Therapeutic product effect decreased [Unknown]

NARRATIVE: CASE EVENT DATE: 20220201
